FAERS Safety Report 20973063 (Version 3)
Quarter: 2022Q3

REPORT INFORMATION
  Report Type: Spontaneous
  Country: US (occurrence: None)
  Receive Date: 20220617
  Receipt Date: 20220702
  Transmission Date: 20221027
  Serious: Yes (Other)
  Sender: FDA-Public Use
  Company Number: 2022A211650

PATIENT
  Age: 84 Year

DRUGS (3)
  1. BUDESONIDE\FORMOTEROL\GLYCOPYRRONIUM [Suspect]
     Active Substance: BUDESONIDE\FORMOTEROL\GLYCOPYRRONIUM
     Indication: Chronic obstructive pulmonary disease
     Dosage: 160MCG/9MCG/4.8MCG, 120 ACTUATION INHALER AS 2 PUFFS TWICE A DAY, STARTED ABOUT 3 MONTHS
     Route: 055
     Dates: start: 2022
  2. VENTOLIN [Concomitant]
     Active Substance: ALBUTEROL SULFATE
  3. PLAVIX [Concomitant]
     Active Substance: CLOPIDOGREL BISULFATE

REACTIONS (14)
  - Transient ischaemic attack [Unknown]
  - Dyspnoea [Unknown]
  - Rhinorrhoea [Not Recovered/Not Resolved]
  - Sinus congestion [Not Recovered/Not Resolved]
  - Stress [Not Recovered/Not Resolved]
  - Oropharyngeal discomfort [Unknown]
  - Sensation of foreign body [Unknown]
  - Wrong technique in device usage process [Unknown]
  - Device use issue [Recovered/Resolved]
  - Blood pressure abnormal [Unknown]
  - Cognitive disorder [Unknown]
  - Dizziness [Unknown]
  - Fatigue [Unknown]
  - Device malfunction [Unknown]

NARRATIVE: CASE EVENT DATE: 20220101
